FAERS Safety Report 8342064-9 (Version None)
Quarter: 2012Q2

REPORT INFORMATION
  Report Type: 
  Country: None (occurrence: None)
  Receive Date: 20120507
  Receipt Date: 20120429
  Transmission Date: 20120825
  Serious: Yes (Other)
  Sender: FDA-Public Use
  Company Number: PHHY2012DE036377

PATIENT
  Age: 32 Year
  Sex: Male

DRUGS (5)
  1. MYCOPHENOLATE MOFETIL (CELLCEPT) [Concomitant]
  2. CYCLOPHOSPHAMIDE [Concomitant]
  3. CYCLOSPORINE [Suspect]
  4. PLASMAPHERESIS BLOOD-PACK SYSTEM INFUSION [Concomitant]
     Dosage: UNK UKN, UNK
  5. DEXAMETHASONE [Concomitant]

REACTIONS (5)
  - NERVOUS SYSTEM DISORDER [None]
  - GENERALISED OEDEMA [None]
  - IMMUNOGLOBULINS INCREASED [None]
  - PLEURAL EFFUSION [None]
  - LIGHT CHAIN ANALYSIS INCREASED [None]
